FAERS Safety Report 5121039-7 (Version None)
Quarter: 2006Q4

REPORT INFORMATION
  Report Type: 
  Country: None (occurrence: None)
  Receive Date: 20061005
  Receipt Date: 20060606
  Transmission Date: 20070319
  Serious: Yes (Hospitalization, Other)
  Sender: FDA-Public Use
  Company Number: DE-NOVOPROD-253908

PATIENT
  Age: 6 Year
  Sex: Female
  Weight: 19 kg

DRUGS (1)
  1. NORDITROPIN SIMPLEXX [Suspect]
     Indication: TURNER'S SYNDROME
     Dosage: .7 MG, QD
     Route: 058
     Dates: start: 20021218

REACTIONS (1)
  - DEVELOPMENTAL GLAUCOMA [None]
